FAERS Safety Report 4884937-5 (Version None)
Quarter: 2006Q1

REPORT INFORMATION
  Report Type: 
  Country: None (occurrence: None)
  Receive Date: 20060117
  Receipt Date: 20060106
  Transmission Date: 20060701
  Serious: Yes (Hospitalization)
  Sender: FDA-Public Use
  Company Number: 2006-00062

PATIENT
  Age: 74 Year
  Sex: Male

DRUGS (5)
  1. NIFEDIPINE [Suspect]
     Dosage: ORAL
     Route: 048
  2. METOPROLOL (METOPROLOL) [Concomitant]
  3. VASOTEC [Concomitant]
  4. VERAPAMIL [Concomitant]
  5. SYNTHROID [Concomitant]

REACTIONS (2)
  - FOREIGN BODY TRAUMA [None]
  - SMALL INTESTINAL OBSTRUCTION [None]
